FAERS Safety Report 7611031-2 (Version None)
Quarter: 2011Q3

REPORT INFORMATION
  Report Type: 
  Country: None (occurrence: None)
  Receive Date: 20110715
  Receipt Date: 20110704
  Transmission Date: 20111222
  Serious: Yes (Other)
  Sender: FDA-Public Use
  Company Number: JP-JNJFOC-20110508299

PATIENT
  Sex: Male
  Weight: 94 kg

DRUGS (12)
  1. REMICADE [Suspect]
     Route: 042
  2. REMICADE [Suspect]
     Dosage: FIFTH INFUSION
     Route: 042
     Dates: start: 20110304
  3. CANDESARTAN CILEXETIL [Concomitant]
     Indication: HYPERTENSION
     Route: 048
  4. REMICADE [Suspect]
     Route: 042
     Dates: start: 20101001
  5. FOSRENOL [Concomitant]
     Indication: HYPERPHOSPHATAEMIA
     Route: 048
  6. DORNER [Concomitant]
     Indication: ARTERIOSCLEROSIS OBLITERANS
     Route: 048
  7. POLARAMINE [Concomitant]
     Indication: RHINITIS ALLERGIC
     Route: 048
  8. RENAGEL [Concomitant]
     Indication: HYPERPHOSPHATAEMIA
     Route: 048
  9. ASPIRIN [Concomitant]
     Indication: ARTERIOSCLEROSIS OBLITERANS
     Route: 048
  10. REMICADE [Suspect]
     Indication: PSORIASIS
     Route: 042
  11. REMICADE [Suspect]
     Route: 042
     Dates: start: 20101015
  12. CALCIUM CARBONATE [Concomitant]
     Route: 048

REACTIONS (2)
  - INTERSTITIAL LUNG DISEASE [None]
  - LUPUS-LIKE SYNDROME [None]
